FAERS Safety Report 23023374 (Version 1)
Quarter: 2023Q4

REPORT INFORMATION
  Report Type: Spontaneous
  Country: US (occurrence: None)
  Receive Date: 20231002
  Receipt Date: 20231002
  Transmission Date: 20240110
  Serious: Yes (Hospitalization)
  Sender: FDA-Public Use
  Company Number: None

PATIENT
  Age: 71 Year
  Sex: Male

DRUGS (2)
  1. OPSUMIT [Suspect]
     Active Substance: MACITENTAN
     Indication: Pulmonary arterial hypertension
     Dosage: FREQUENCY : DAILY;?
     Route: 048
     Dates: start: 202308
  2. TYVASO DPI TITRAT KIT POW [Concomitant]

REACTIONS (5)
  - Peripheral swelling [None]
  - Joint swelling [None]
  - Peripheral swelling [None]
  - Weight abnormal [None]
  - Oedema [None]

NARRATIVE: CASE EVENT DATE: 20230101
